FAERS Safety Report 20504698 (Version 1)
Quarter: 2022Q1

REPORT INFORMATION
  Report Type: Spontaneous
  Country: US (occurrence: US)
  Receive Date: 20220223
  Receipt Date: 20220223
  Transmission Date: 20220423
  Serious: Yes (Other)
  Sender: FDA-Public Use
  Company Number: US-SUN PHARMACEUTICAL INDUSTRIES LTD-2022R1-326860

PATIENT
  Age: 63 Year
  Sex: Female

DRUGS (3)
  1. BUDESONIDE [Suspect]
     Active Substance: BUDESONIDE
     Indication: Chronic obstructive pulmonary disease
     Dosage: UNK, BID
  2. METHYLPREDNISOLONE [Suspect]
     Active Substance: METHYLPREDNISOLONE
     Indication: Chronic obstructive pulmonary disease
     Dosage: 40 MILLIGRAM Q6H
     Route: 042
  3. albuterol-ipratropium nebulization [Concomitant]
     Indication: Chronic obstructive pulmonary disease
     Dosage: UNK, Q4H
     Route: 065

REACTIONS (1)
  - Herpes oesophagitis [Recovered/Resolved]
